FAERS Safety Report 4436281-8 (Version None)
Quarter: 2004Q3

REPORT INFORMATION
  Report Type: 
  Country: None (occurrence: None)
  Receive Date: 20040830
  Receipt Date: 20040629
  Transmission Date: 20050211
  Serious: Yes (Other)
  Sender: FDA-Public Use
  Company Number: US-BRISTOL-MYERS SQUIBB COMPANY-12629200

PATIENT
  Sex: Female

DRUGS (2)
  1. ERBITUX [Suspect]
     Indication: COLON CANCER
     Dosage: NEXT DOSE HELD.
     Route: 042
     Dates: start: 20040618, end: 20040618
  2. IRINOTECAN [Concomitant]
     Route: 042
     Dates: start: 20040618, end: 20040618

REACTIONS (1)
  - RASH [None]
